FAERS Safety Report 5897201-2 (Version None)
Quarter: 2008Q3

REPORT INFORMATION
  Report Type: 
  Country: None (occurrence: None)
  Receive Date: 20080923
  Receipt Date: 20080918
  Transmission Date: 20090109
  Serious: Yes (Other)
  Sender: FDA-Public Use
  Company Number: 2008SP018540

PATIENT
  Age: 85 Year
  Sex: Female

DRUGS (5)
  1. MIRALAX [Suspect]
     Indication: CONSTIPATION
     Dosage: QD; PO, QPM; PO
     Route: 048
     Dates: start: 20080101
  2. MIRALAX [Suspect]
     Indication: CONSTIPATION
     Dosage: QD; PO, QPM; PO
     Route: 048
     Dates: start: 20080901
  3. DICYCLOMINE [Concomitant]
  4. ZOCOR [Concomitant]
  5. DIAZIDE [Concomitant]

REACTIONS (1)
  - ULCER HAEMORRHAGE [None]
